FAERS Safety Report 17218107 (Version 7)
Quarter: 2020Q2

REPORT INFORMATION
  Report Type: Spontaneous
  Country: AT (occurrence: AT)
  Receive Date: 20191231
  Receipt Date: 20200508
  Transmission Date: 20200713
  Serious: Yes (Hospitalization, Other)
  Sender: FDA-Public Use
  Company Number: AT-GLAXOSMITHKLINE-AT2019GSK236871

PATIENT
  Age: 66 Year
  Sex: Male
  Weight: 93 kg

DRUGS (11)
  1. ELIQUIS [Suspect]
     Active Substance: APIXABAN
     Indication: PRODUCT USED FOR UNKNOWN INDICATION
     Dosage: 5 MG, BID (QD 5MG,BID)
     Route: 065
     Dates: start: 201602, end: 201607
  2. LISINOPRIL. [Suspect]
     Active Substance: LISINOPRIL
     Indication: PRODUCT USED FOR UNKNOWN INDICATION
     Dosage: 10 MG
     Route: 048
  3. CHLORPROMAZINE HYDROCHLORIDE. [Suspect]
     Active Substance: CHLORPROMAZINE HYDROCHLORIDE
     Indication: PRODUCT USED FOR UNKNOWN INDICATION
     Dosage: 10 MG
     Route: 048
  4. SIMVASTATIN. [Suspect]
     Active Substance: SIMVASTATIN
     Indication: PRODUCT USED FOR UNKNOWN INDICATION
     Dosage: 20 MG, QD
     Route: 065
     Dates: start: 2016
  5. ZOLPIDEM TARTRATE. [Suspect]
     Active Substance: ZOLPIDEM TARTRATE
     Indication: PRODUCT USED FOR UNKNOWN INDICATION
     Dosage: 20 MG
     Route: 065
     Dates: start: 2016
  6. NICOTINE. [Suspect]
     Active Substance: NICOTINE
     Indication: PRODUCT USED FOR UNKNOWN INDICATION
     Dosage: UNK
     Route: 065
     Dates: start: 2016, end: 201607
  7. TAMSULOSIN HYDROCHLORIDE. [Suspect]
     Active Substance: TAMSULOSIN HYDROCHLORIDE
     Indication: PRODUCT USED FOR UNKNOWN INDICATION
     Dosage: UNK
     Route: 065
     Dates: start: 2016, end: 201607
  8. HEPARIN SODIUM. [Suspect]
     Active Substance: HEPARIN SODIUM
     Indication: PRODUCT USED FOR UNKNOWN INDICATION
     Dosage: UNK
     Route: 065
     Dates: start: 2016
  9. ACETYLSALICYLIC ACID [Suspect]
     Active Substance: ASPIRIN
     Indication: PRODUCT USED FOR UNKNOWN INDICATION
     Dosage: UNK
     Route: 065
     Dates: start: 2016, end: 201607
  10. DICLOFENAC DIETHYLAMINE [Suspect]
     Active Substance: DICLOFENAC DIETHYLAMINE
     Indication: INTERVERTEBRAL DISC OPERATION
     Dosage: UNK
     Route: 065
     Dates: start: 2016
  11. XEFO [Suspect]
     Active Substance: LORNOXICAM
     Indication: INTERVERTEBRAL DISC OPERATION
     Dosage: UNK
     Route: 065
     Dates: start: 2016

REACTIONS (8)
  - Cerebral infarction [Recovered/Resolved]
  - Contraindicated product administered [Unknown]
  - Cerebrovascular accident [Unknown]
  - Cerebral ischaemia [Unknown]
  - Dizziness [Unknown]
  - Cerebral haemorrhage [Unknown]
  - Headache [Recovered/Resolved]
  - Ischaemic stroke [Unknown]

NARRATIVE: CASE EVENT DATE: 20160223
